FAERS Safety Report 8216601-9 (Version None)
Quarter: 2012Q1

REPORT INFORMATION
  Report Type: 
  Country: None (occurrence: None)
  Receive Date: 20120316
  Receipt Date: 20120303
  Transmission Date: 20120608
  Serious: Yes (Other)
  Sender: FDA-Public Use
  Company Number: CHPA2012US002883

PATIENT
  Age: 70 Year
  Sex: Female

DRUGS (4)
  1. GAS-X EXTRA STRENGTH [Suspect]
     Indication: FLATULENCE
     Dosage: 3 TO 4 DF, QD
     Route: 048
     Dates: end: 20120101
  2. GAS-X EXTRA STRENGTH SOFTGELS [Suspect]
     Dosage: UNK, UNK
  3. PRILOSEC [Concomitant]
     Dosage: 20 MG, UNK
  4. LIPITOR [Concomitant]

REACTIONS (3)
  - DIARRHOEA [None]
  - IRRITABLE BOWEL SYNDROME [None]
  - ROTATOR CUFF SYNDROME [None]
